FAERS Safety Report 25778063 (Version 1)
Quarter: 2025Q3

REPORT INFORMATION
  Report Type: Report from Study
  Country: US (occurrence: US)
  Receive Date: 20250909
  Receipt Date: 20250909
  Transmission Date: 20251021
  Serious: Yes (Other)
  Sender: ALEXION PHARMACEUTICALS
  Company Number: US-AstraZeneca-CH-00945137A

PATIENT
  Age: 71 Year
  Sex: Female

DRUGS (1)
  1. EPLONTERSEN SODIUM [Suspect]
     Active Substance: EPLONTERSEN SODIUM
     Dosage: 45 MILLIGRAM, Q4W

REACTIONS (7)
  - Pericardial effusion [Unknown]
  - Odynophagia [Unknown]
  - Dyspnoea exertional [Unknown]
  - Cough [Not Recovered/Not Resolved]
  - Limb discomfort [Unknown]
  - Pain [Unknown]
  - Catheterisation cardiac [Unknown]

NARRATIVE: CASE EVENT DATE: 20250818
